FAERS Safety Report 15725554 (Version 1)
Quarter: 2018Q4

REPORT INFORMATION
  Report Type: Spontaneous
  Country: ES (occurrence: ES)
  Receive Date: 20181215
  Receipt Date: 20181215
  Transmission Date: 20190205
  Serious: Yes (Hospitalization, Other)
  Sender: FDA-Public Use
  Company Number: ES-ACCORD-096238

PATIENT
  Age: 55 Year
  Sex: Male

DRUGS (3)
  1. PRAMIPEXOLE/PRAMIPEXOLE DIHYDROCHLORIDE [Interacting]
     Active Substance: PRAMIPEXOLE DIHYDROCHLORIDE
     Indication: PARKINSON^S DISEASE
     Dosage: 2.36 MG EVERY DAY
     Route: 048
     Dates: start: 201605, end: 20180109
  2. SINEMET PLUS [Interacting]
     Active Substance: CARBIDOPA\LEVODOPA
     Indication: PARKINSON^S DISEASE
     Dosage: 1 CP 3 TIMES A DAY
     Route: 048
     Dates: start: 20171222
  3. QUETIAPINE. [Suspect]
     Active Substance: QUETIAPINE
     Indication: PSYCHOTIC DISORDER
     Dosage: 25 MG ONCE A DAY
     Route: 048
     Dates: start: 20171222, end: 20180106

REACTIONS (3)
  - Acute psychosis [Recovered/Resolved]
  - Drug interaction [Unknown]
  - Contraindicated product prescribed [Unknown]

NARRATIVE: CASE EVENT DATE: 20171222
